FAERS Safety Report 25412135 (Version 1)
Quarter: 2025Q2

REPORT INFORMATION
  Report Type: Report from Study
  Country: CA (occurrence: CA)
  Receive Date: 20250609
  Receipt Date: 20250609
  Transmission Date: 20250717
  Serious: Yes (Other)
  Sender: BIOCON
  Company Number: CA-BIOCON BIOLOGICS LIMITED-2022M1078985

PATIENT

DRUGS (2)
  1. HULIO [Suspect]
     Active Substance: ADALIMUMAB-FKJP
     Indication: Crohn^s disease
     Dosage: 40 MILLIGRAM, Q2W (BIWEEKLY)
     Route: 058
     Dates: start: 20211201
  2. DEPO-PROVERA [Concomitant]
     Active Substance: MEDROXYPROGESTERONE ACETATE
     Indication: Dysmenorrhoea
     Route: 065

REACTIONS (17)
  - Intestinal ulcer [Unknown]
  - Lower respiratory tract infection [Unknown]
  - Burning sensation [Recovered/Resolved]
  - Panic attack [Recovered/Resolved]
  - Nasal congestion [Unknown]
  - Hyperhidrosis [Unknown]
  - Malaise [Unknown]
  - Anxiety [Recovered/Resolved]
  - Injection site pain [Recovered/Resolved]
  - COVID-19 [Unknown]
  - Cough [Unknown]
  - Influenza [Unknown]
  - Pharyngitis [Unknown]
  - Nasopharyngitis [Unknown]
  - Therapy interrupted [Unknown]
  - Product dose omission issue [Unknown]
  - Inappropriate schedule of product administration [Unknown]

NARRATIVE: CASE EVENT DATE: 20220616
